FAERS Safety Report 21463765 (Version 1)
Quarter: 2022Q4

REPORT INFORMATION
  Report Type: Spontaneous
  Country: IN (occurrence: IN)
  Receive Date: 20221017
  Receipt Date: 20221017
  Transmission Date: 20230112
  Serious: Yes (Death, Other)
  Sender: FDA-Public Use
  Company Number: IN-Shilpa Medicare Limited-SML-IN-2022-01325

PATIENT
  Age: 52 Year
  Sex: Female

DRUGS (2)
  1. AZACITIDINE [Suspect]
     Active Substance: AZACITIDINE
     Indication: Acute myeloid leukaemia
  2. VENETOCLAX [Suspect]
     Active Substance: VENETOCLAX
     Indication: Acute myeloid leukaemia

REACTIONS (2)
  - Pneumocystis jirovecii pneumonia [Fatal]
  - Neutropenia [Unknown]
